FAERS Safety Report 16614422 (Version 4)
Quarter: 2019Q3

REPORT INFORMATION
  Report Type: Spontaneous
  Country: CA (occurrence: CA)
  Receive Date: 20190723
  Receipt Date: 20190902
  Transmission Date: 20191004
  Serious: Yes (Disabling, Other)
  Sender: FDA-Public Use
  Company Number: CA-PFIZER INC-2019086796

PATIENT
  Age: 56 Year
  Sex: Male

DRUGS (2)
  1. TRAZODONE [Concomitant]
     Active Substance: TRAZODONE HYDROCHLORIDE
     Indication: SLEEP DISORDER
     Dosage: UNK
  2. XELJANZ [Suspect]
     Active Substance: TOFACITINIB CITRATE
     Indication: PSORIATIC ARTHROPATHY
     Dosage: 5 MG, 2X/DAY
     Route: 048
     Dates: start: 201902, end: 20190624

REACTIONS (6)
  - Drug hypersensitivity [Unknown]
  - Deafness unilateral [Not Recovered/Not Resolved]
  - Autoimmune disorder [Unknown]
  - Hypoacusis [Unknown]
  - Mobility decreased [Unknown]
  - Visual impairment [Unknown]

NARRATIVE: CASE EVENT DATE: 20190624
